FAERS Safety Report 22601467 (Version 1)
Quarter: 2023Q2

REPORT INFORMATION
  Report Type: Report from Study
  Country: US (occurrence: US)
  Receive Date: 20230614
  Receipt Date: 20230614
  Transmission Date: 20230722
  Serious: Yes (Other)
  Sender: FDA-Public Use
  Company Number: US-BAYER-2023A082377

PATIENT
  Age: 71 Year
  Sex: Male

DRUGS (3)
  1. ASPIRIN [Suspect]
     Active Substance: ASPIRIN
  2. APIXABAN [Suspect]
     Active Substance: APIXABAN
  3. RUXOLITINIB [Suspect]
     Active Substance: RUXOLITINIB

REACTIONS (5)
  - Scalp haematoma [None]
  - Haematoma [None]
  - Anaemia [None]
  - Haemoglobin decreased [None]
  - Labelled drug-drug interaction medication error [None]
